FAERS Safety Report 5487573-5 (Version None)
Quarter: 2007Q4

REPORT INFORMATION
  Report Type: 
  Country: None (occurrence: None)
  Receive Date: 20071015
  Receipt Date: 20071001
  Transmission Date: 20080405
  Serious: Yes (Other)
  Sender: FDA-Public Use
  Company Number: STI-2007-01577

PATIENT
  Age: 69 Year
  Sex: Female

DRUGS (1)
  1. BETADERM [Suspect]
     Indication: ALOPECIA
     Dosage: (AT NIGHT) SOME DROPS ON SCALP
     Dates: start: 20070930, end: 20070930

REACTIONS (6)
  - ASPHYXIA [None]
  - COUGH [None]
  - DYSGEUSIA [None]
  - MALAISE [None]
  - OFF LABEL USE [None]
  - RESPIRATORY DISORDER [None]
